FAERS Safety Report 9244847 (Version 1)
Quarter: 2013Q1

REPORT INFORMATION
  Report Type: Spontaneous
  Country: US (occurrence: None)
  Receive Date: 20121130
  Receipt Date: 20121130
  Transmission Date: 20140127
  Serious: Yes (Hospitalization)
  Sender: FDA-Public Use
  Company Number: US201208006791

PATIENT
  Age: 50 Year
  Sex: Male

DRUGS (2)
  1. BYDUREON [Suspect]
     Indication: DIABETES MELLITUS
     Route: 058
     Dates: start: 201205
  2. METFORMIN (METFORMIN) [Concomitant]

REACTIONS (1)
  - Abdominal pain [None]
